FAERS Safety Report 8806249 (Version 1)
Quarter: 2012Q4

REPORT INFORMATION
  Report Type: Spontaneous
  Country: None (occurrence: None)
  Receive Date: 20120919
  Receipt Date: 20120919
  Transmission Date: 20130627
  Serious: Yes (Hospitalization, Other)
  Sender: FDA-Public Use
  Company Number: 2012MA010984

PATIENT
  Sex: Female

DRUGS (1)
  1. FEVERALL [Suspect]
     Indication: OVERDOSE
     Route: 048

REACTIONS (4)
  - Exposure during pregnancy [None]
  - Induced labour [None]
  - Incorrect dose administered [None]
  - Analgesic drug level above therapeutic [None]
